FAERS Safety Report 6032065-8 (Version None)
Quarter: 2009Q1

REPORT INFORMATION
  Report Type: 
  Country: None (occurrence: None)
  Receive Date: 20090108
  Receipt Date: 20081216
  Transmission Date: 20090719
  Serious: Yes (Other)
  Sender: FDA-Public Use
  Company Number: US-WYE-H07287608

PATIENT
  Age: 76 Year
  Sex: Male

DRUGS (5)
  1. PRISTIQ [Suspect]
     Indication: DEPRESSION
     Route: 048
     Dates: start: 20081101, end: 20080101
  2. VITAMINS NOS [Concomitant]
     Dosage: UNKNOWN
  3. DIGOXIN [Concomitant]
     Indication: CARDIAC DISORDER
     Dosage: UNKNOWN
     Dates: start: 20070101
  4. INOSITOL [Concomitant]
     Indication: DEPRESSION
  5. LISINOPRIL [Concomitant]
     Indication: HYPERTENSION
     Dosage: UNKNOWN
     Dates: start: 20070101

REACTIONS (7)
  - ABDOMINAL DISCOMFORT [None]
  - ANOREXIA [None]
  - BALANCE DISORDER [None]
  - DEPRESSED MOOD [None]
  - HEADACHE [None]
  - SUICIDAL IDEATION [None]
  - TINNITUS [None]
